FAERS Safety Report 14795281 (Version 1)
Quarter: 2018Q2

REPORT INFORMATION
  Report Type: Spontaneous
  Country: US (occurrence: US)
  Receive Date: 20180423
  Receipt Date: 20180423
  Transmission Date: 20180711
  Serious: No
  Sender: FDA-Public Use
  Company Number: US-ACTELION-A-NJ2018-170049

PATIENT
  Age: 51 Year
  Sex: Female
  Weight: 63.39 kg

DRUGS (3)
  1. TYVASO [Concomitant]
     Active Substance: TREPROSTINIL
  2. SILDENAFIL CITRATE. [Concomitant]
     Active Substance: SILDENAFIL CITRATE
  3. OPSUMIT [Suspect]
     Active Substance: MACITENTAN
     Indication: PULMONARY HYPERTENSION
     Dosage: 10 MG, QD
     Route: 048
     Dates: start: 20180302, end: 20180327

REACTIONS (6)
  - Therapy non-responder [Unknown]
  - Peripheral coldness [Not Recovered/Not Resolved]
  - Weight increased [Unknown]
  - Peripheral swelling [Unknown]
  - Fluid retention [Unknown]
  - Musculoskeletal stiffness [Not Recovered/Not Resolved]

NARRATIVE: CASE EVENT DATE: 20180313
